FAERS Safety Report 20164791 (Version 6)
Quarter: 2022Q2

REPORT INFORMATION
  Report Type: Spontaneous
  Country: US (occurrence: US)
  Receive Date: 20211209
  Receipt Date: 20220629
  Transmission Date: 20220721
  Serious: Yes (Hospitalization, Other)
  Sender: FDA-Public Use
  Company Number: US-PROCTER_AND_GAMBLE-GS21113450

PATIENT
  Sex: Female

DRUGS (1)
  1. ALUMINUM ZIRCONIUM TETRACHLOROHYDREX GLY [Suspect]
     Active Substance: ALUMINUM ZIRCONIUM TETRACHLOROHYDREX GLY
     Route: 061

REACTIONS (8)
  - Invasive ductal breast carcinoma [Unknown]
  - Lymphoma [Unknown]
  - Dehydration [Unknown]
  - Hormone receptor positive breast cancer [Unknown]
  - Weight decreased [Unknown]
  - Alopecia [Recovered/Resolved with Sequelae]
  - Hair colour changes [Not Recovered/Not Resolved]
  - Immune system disorder [Not Recovered/Not Resolved]
